FAERS Safety Report 25898391 (Version 1)
Quarter: 2025Q4

REPORT INFORMATION
  Report Type: Report from Study
  Country: US (occurrence: US)
  Receive Date: 20251009
  Receipt Date: 20251009
  Transmission Date: 20260117
  Serious: Yes (Other)
  Sender: ABBVIE
  Company Number: US-ABBVIE-6492290

PATIENT
  Age: 21 Year
  Sex: Female

DRUGS (1)
  1. VIBERZI [Suspect]
     Active Substance: ELUXADOLINE
     Indication: Product used for unknown indication
     Route: 048
     Dates: start: 202409

REACTIONS (8)
  - Blindness [Unknown]
  - Nausea [Unknown]
  - Panic attack [Unknown]
  - Vomiting projectile [Unknown]
  - Abdominal pain upper [Unknown]
  - Chest pain [Unknown]
  - Gait disturbance [Unknown]
  - Expired product administered [Unknown]

NARRATIVE: CASE EVENT DATE: 20240901
